FAERS Safety Report 25930502 (Version 2)
Quarter: 2025Q4

REPORT INFORMATION
  Report Type: Spontaneous
  Country: US (occurrence: US)
  Receive Date: 20251016
  Receipt Date: 20251224
  Transmission Date: 20260118
  Serious: Yes (Other)
  Sender: PFIZER
  Company Number: US-PFIZER INC-PV202500121117

PATIENT
  Age: 57 Year
  Sex: Female

DRUGS (10)
  1. DOCETAXEL [Suspect]
     Active Substance: DOCETAXEL
     Indication: Hormone receptor negative HER2 positive breast cancer
     Dosage: 123 MG, CYCLIC (EVERY 3 WEEKS, 02 CYCLES)
     Dates: start: 20151106, end: 20151201
  2. TAXOTERE [Suspect]
     Active Substance: DOCETAXEL
     Indication: Hormone receptor negative HER2 positive breast cancer
     Dosage: 123 MG, CYCLIC (EVERY 3 WEEKS, 02 CYCLES)
     Dates: start: 20151106, end: 20151201
  3. DOCETAXEL [Suspect]
     Active Substance: DOCETAXEL
     Indication: Hormone receptor negative HER2 positive breast cancer
     Dosage: 123 MG, CYCLIC (EVERY 3 WEEKS, 02 CYCLES)
     Dates: start: 20151106, end: 20151201
  4. DOCETAXEL [Suspect]
     Active Substance: DOCETAXEL
     Indication: Hormone receptor negative HER2 positive breast cancer
     Dosage: 123 MG, CYCLIC (EVERY 3 WEEKS, 02 CYCLES)
     Dates: start: 20151106, end: 20151201
  5. DOCETAXEL [Suspect]
     Active Substance: DOCETAXEL
     Indication: Hormone receptor negative HER2 positive breast cancer
     Dosage: 123 MG, CYCLIC (EVERY 3 WEEKS, 02 CYCLES)
     Dates: start: 20151106, end: 20151201
  6. DOCETAXEL [Suspect]
     Active Substance: DOCETAXEL
     Indication: Hormone receptor negative HER2 positive breast cancer
     Dosage: 123 MG, CYCLIC (EVERY 3 WEEKS, 02 CYCLES)
     Dates: start: 20151106, end: 20151201
  7. DOCETAXEL [Suspect]
     Active Substance: DOCETAXEL
     Indication: Hormone receptor negative HER2 positive breast cancer
     Dosage: 123 MG, CYCLIC (EVERY 3 WEEKS, 02 CYCLES)
     Dates: start: 20151106, end: 20151201
  8. HERCEPTIN [Concomitant]
     Active Substance: TRASTUZUMAB
     Indication: Chemotherapy
     Dosage: UNK
  9. CYTOXAN [Concomitant]
     Active Substance: CYCLOPHOSPHAMIDE
     Indication: Chemotherapy
     Dosage: UNK
  10. METHOTREXATE [Concomitant]
     Active Substance: METHOTREXATE
     Indication: Chemotherapy
     Dosage: UNK

REACTIONS (5)
  - Lacrimal structure injury [Unknown]
  - Eyelid ptosis [Recovered/Resolved]
  - Chalazion [Recovered/Resolved]
  - Lacrimation increased [Not Recovered/Not Resolved]
  - Dacryostenosis acquired [Recovered/Resolved]

NARRATIVE: CASE EVENT DATE: 20151101
